FAERS Safety Report 14195613 (Version 2)
Quarter: 2017Q4

REPORT INFORMATION
  Report Type: Report from Study
  Country: US (occurrence: US)
  Receive Date: 20171116
  Receipt Date: 20171215
  Transmission Date: 20180321
  Serious: No
  Sender: FDA-Public Use
  Company Number: PHEH2017US037091

PATIENT
  Sex: Male
  Weight: 99.7 kg

DRUGS (1)
  1. ENTRESTO [Suspect]
     Active Substance: SACUBITRIL\VALSARTAN
     Indication: EJECTION FRACTION DECREASED
     Dosage: 100 MG (49 MG OF SACUBITRIL/ 51 MG OF VALSARTAN), BID
     Route: 048

REACTIONS (1)
  - Drug ineffective [Unknown]
